FAERS Safety Report 18208069 (Version 2)
Quarter: 2020Q4

REPORT INFORMATION
  Report Type: Spontaneous
  Country: US (occurrence: US)
  Receive Date: 20200828
  Receipt Date: 20201023
  Transmission Date: 20210113
  Serious: No
  Sender: FDA-Public Use
  Company Number: US-BIOGEN-2020BI00916382

PATIENT
  Age: 39 Year
  Sex: Female

DRUGS (11)
  1. GABAPENTIN. [Concomitant]
     Active Substance: GABAPENTIN
     Route: 048
  2. TOPAMAX [Concomitant]
     Active Substance: TOPIRAMATE
     Dosage: ONE TO TWO TABLETS AS DIRECTED
     Route: 048
  3. BELBUCA [Concomitant]
     Active Substance: BUPRENORPHINE HYDROCHLORIDE
     Indication: PAIN
     Route: 048
  4. RIBOFLAVIN [Concomitant]
     Active Substance: RIBOFLAVIN
     Route: 048
  5. VITAMIN D [Concomitant]
     Active Substance: VITAMIN D NOS
     Dosage: 2000UNITS
     Route: 048
  6. KENALOG [Concomitant]
     Active Substance: TRIAMCINOLONE ACETONIDE
     Indication: RASH
     Dosage: APPLY TWICE DAY FOR 14 DAYS
     Route: 065
  7. BACLOFEN. [Concomitant]
     Active Substance: BACLOFEN
     Route: 048
  8. TYSABRI [Suspect]
     Active Substance: NATALIZUMAB
     Indication: MULTIPLE SCLEROSIS
     Route: 042
     Dates: start: 2007
  9. TECFIDERA [Suspect]
     Active Substance: DIMETHYL FUMARATE
     Indication: MULTIPLE SCLEROSIS
     Route: 065
  10. PROZAC [Concomitant]
     Active Substance: FLUOXETINE HYDROCHLORIDE
     Route: 048
  11. VITAMIN E [Concomitant]
     Active Substance: .ALPHA.-TOCOPHEROL
     Route: 048

REACTIONS (8)
  - Peptic ulcer [Unknown]
  - Migraine [Unknown]
  - Epicondylitis [Unknown]
  - Optic neuritis [Unknown]
  - Ovarian cyst [Unknown]
  - Gastrooesophageal reflux disease [Unknown]
  - Diverticulitis [Unknown]
  - Oesophageal ulcer [Unknown]

NARRATIVE: CASE EVENT DATE: 2012
